FAERS Safety Report 5620357-3 (Version None)
Quarter: 2008Q1

REPORT INFORMATION
  Report Type: 
  Country: None (occurrence: None)
  Receive Date: 20080208
  Receipt Date: 20080129
  Transmission Date: 20080703
  Serious: Yes (Hospitalization)
  Sender: FDA-Public Use
  Company Number: US-ELI_LILLY_AND_COMPANY-US200801006403

PATIENT
  Sex: Female

DRUGS (15)
  1. BYETTA [Suspect]
     Dosage: 5 UG, 2/D
     Route: 058
     Dates: start: 20060101
  2. BYETTA [Suspect]
     Dosage: 10 UG, 2/D
     Route: 058
     Dates: end: 20070101
  3. BYETTA [Suspect]
     Dosage: 5 UG, 2/D
     Route: 058
     Dates: start: 20070101, end: 20070101
  4. BYETTA [Suspect]
     Dosage: 10 UG, 2/D
     Route: 058
     Dates: start: 20070101, end: 20080101
  5. METOPROLOL TARTRATE [Concomitant]
     Dosage: 25 MG, UNKNOWN
  6. GLYBURIDE [Concomitant]
     Indication: DIABETES MELLITUS
     Dosage: 5 MG, 2/D
  7. LEVOTHYROXINE SODIUM [Concomitant]
     Indication: THYROID THERAPY
  8. POTASSIUM CHLORIDE [Concomitant]
     Dosage: 20 MEQ, UNKNOWN
  9. RYTHMOL [Concomitant]
     Dosage: 325 MG, UNKNOWN
  10. BUMETANIDE [Concomitant]
     Dosage: 2 MG, DAILY (1/D)
  11. METFORMIN HCL [Concomitant]
     Indication: DIABETES MELLITUS
  12. DIOVAN /SCH/ [Concomitant]
     Dosage: 80 MG, UNKNOWN
  13. LIPITOR [Concomitant]
     Dosage: 10 MG, UNKNOWN
  14. PROMETHAZINE [Concomitant]
  15. NITROGLYCERIN [Concomitant]
     Dosage: UNK, AS NEEDED

REACTIONS (6)
  - ALOPECIA [None]
  - INJECTION SITE HAEMORRHAGE [None]
  - INJECTION SITE URTICARIA [None]
  - PAIN IN EXTREMITY [None]
  - THYROID CANCER METASTATIC [None]
  - WEIGHT DECREASED [None]
